FAERS Safety Report 12963072 (Version 1)
Quarter: 2016Q4

REPORT INFORMATION
  Report Type: Spontaneous
  Country: US (occurrence: US)
  Receive Date: 20161122
  Receipt Date: 20161122
  Transmission Date: 20170207
  Serious: Yes (Other)
  Sender: FDA-Public Use
  Company Number: US-AMGEN-USASP2016160613

PATIENT

DRUGS (7)
  1. IFOSFAMIDE. [Concomitant]
     Active Substance: IFOSFAMIDE
     Indication: UTERINE CANCER
     Dosage: UNK
  2. MESNA. [Concomitant]
     Active Substance: MESNA
     Indication: UTERINE CANCER
     Dosage: UNK
  3. TAXOL [Concomitant]
     Active Substance: PACLITAXEL
     Indication: SARCOMA UTERUS
  4. NEULASTA [Suspect]
     Active Substance: PEGFILGRASTIM
     Indication: WHITE BLOOD CELL COUNT DECREASED
     Dosage: UNK, AFTER CHEMO
     Route: 065
  5. IFOSFAMIDE. [Concomitant]
     Active Substance: IFOSFAMIDE
     Indication: SARCOMA UTERUS
  6. MESNA. [Concomitant]
     Active Substance: MESNA
     Indication: SARCOMA UTERUS
  7. TAXOL [Concomitant]
     Active Substance: PACLITAXEL
     Indication: UTERINE CANCER
     Dosage: UNK

REACTIONS (2)
  - Adverse drug reaction [Unknown]
  - Radiotherapy [Unknown]
